FAERS Safety Report 21457453 (Version 2)
Quarter: 2022Q4

REPORT INFORMATION
  Report Type: Spontaneous
  Country: JP (occurrence: JP)
  Receive Date: 20221014
  Receipt Date: 20221021
  Transmission Date: 20230112
  Serious: Yes (Life-Threatening, Hospitalization, Other)
  Sender: FDA-Public Use
  Company Number: JP-Accord-281198

PATIENT
  Age: 51 Year
  Sex: Male

DRUGS (4)
  1. AMLODIPINE [Suspect]
     Active Substance: AMLODIPINE BESYLATE
  2. LEVETIRACETAM [Suspect]
     Active Substance: LEVETIRACETAM
  3. TELMISARTAN [Suspect]
     Active Substance: TELMISARTAN
  4. BROTIZOLAM [Suspect]
     Active Substance: BROTIZOLAM

REACTIONS (8)
  - Overdose [Unknown]
  - Acute kidney injury [Recovered/Resolved]
  - Toxicity to various agents [Unknown]
  - Hypotension [Unknown]
  - Suicide attempt [Unknown]
  - Altered state of consciousness [Unknown]
  - Drug level increased [Unknown]
  - Tubulointerstitial nephritis [Recovered/Resolved]
